FAERS Safety Report 14245350 (Version 1)
Quarter: 2017Q4

REPORT INFORMATION
  Report Type: Spontaneous
  Country: US (occurrence: US)
  Receive Date: 20171202
  Receipt Date: 20171202
  Transmission Date: 20180321
  Serious: No
  Sender: FDA-Public Use
  Company Number: US-ENDO PHARMACEUTICALS INC-2017-005488

PATIENT
  Age: 47 Year
  Sex: Male
  Weight: 89.34 kg

DRUGS (4)
  1. XIAFLEX [Suspect]
     Active Substance: COLLAGENASE CLOSTRIDIUM HISTOLYTICUM
     Dosage: 0.9 MG, CYCLE ONE, TWO INJECTIONS, EVERY 6 WEEKS
     Route: 026
     Dates: start: 20170728
  2. PRAVASTATIN SODIUM. [Concomitant]
     Active Substance: PRAVASTATIN SODIUM
     Indication: PRODUCT USED FOR UNKNOWN INDICATION
  3. LANTUS [Concomitant]
     Active Substance: INSULIN GLARGINE
     Indication: PRODUCT USED FOR UNKNOWN INDICATION
  4. XIAFLEX [Suspect]
     Active Substance: COLLAGENASE CLOSTRIDIUM HISTOLYTICUM
     Indication: PEYRONIE^S DISEASE
     Dosage: 0.9 MG, CYCLE TWO, TWO INJECTIONS, EVERY 6 WEEKS
     Route: 026
     Dates: start: 2017

REACTIONS (5)
  - Penile haemorrhage [Unknown]
  - Inappropriate schedule of drug administration [Unknown]
  - Pain [Recovered/Resolved]
  - Penile swelling [Recovered/Resolved]
  - Loss of personal independence in daily activities [Recovered/Resolved]

NARRATIVE: CASE EVENT DATE: 2017
